FAERS Safety Report 6528726-4 (Version None)
Quarter: 2009Q4

REPORT INFORMATION
  Report Type: 
  Country: None (occurrence: None)
  Receive Date: 20091231
  Receipt Date: 20091214
  Transmission Date: 20100525
  Serious: Yes (Hospitalization)
  Sender: FDA-Public Use
  Company Number: 2009AL007777

PATIENT
  Age: 5 Year
  Sex: Female

DRUGS (3)
  1. PROPYLTHIOURACIL TAB [Suspect]
     Indication: BASEDOW'S DISEASE
  2. PROPRANOLOL HYDROCHLORIDE [Suspect]
  3. LEVOTHYROXINE SODIUM [Concomitant]

REACTIONS (7)
  - ABDOMINAL PAIN [None]
  - EXOPHTHALMOS [None]
  - HAEMOPTYSIS [None]
  - LUNG INFILTRATION [None]
  - PRODUCTIVE COUGH [None]
  - PYREXIA [None]
  - VASCULITIS [None]
